FAERS Safety Report 9886166 (Version 1)
Quarter: 2014Q1

REPORT INFORMATION
  Report Type: Spontaneous
  Country: US (occurrence: US)
  Receive Date: 20140210
  Receipt Date: 20140210
  Transmission Date: 20141002
  Serious: No
  Sender: FDA-Public Use
  Company Number: US-BAXTER-2014BAX005697

PATIENT
  Age: 59 Year
  Sex: Male

DRUGS (4)
  1. DIANEAL LOW CALCIUM (ULTRABAG) [Suspect]
     Indication: RENAL FAILURE CHRONIC
     Route: 033
     Dates: start: 20140127
  2. DIANEAL LOW CALCIUM (ULTRABAG) [Suspect]
     Indication: RENAL FAILURE CHRONIC
     Route: 033
     Dates: start: 20140129
  3. MIRALAX [Suspect]
     Indication: CONSTIPATION PROPHYLAXIS
     Route: 048
     Dates: start: 20140127
  4. BENADRYL [Suspect]
     Indication: RASH
     Route: 048
     Dates: start: 20140128, end: 20140128

REACTIONS (5)
  - Rash papular [Recovering/Resolving]
  - Somnolence [Unknown]
  - Local swelling [Recovering/Resolving]
  - Rash [Unknown]
  - Pruritus [Recovering/Resolving]
